FAERS Safety Report 10188351 (Version 4)
Quarter: 2014Q4

REPORT INFORMATION
  Report Type: Spontaneous
  Country: US (occurrence: None)
  Receive Date: 20140520
  Receipt Date: 20141202
  Transmission Date: 20150528
  Serious: Yes (Other)
  Sender: FDA-Public Use
  Company Number: AEGR000449

PATIENT
  Age: 61 Year
  Sex: Male
  Weight: 96.6 kg

DRUGS (2)
  1. FISH OIL [Concomitant]
     Active Substance: FISH OIL
  2. JUXTAPID [Suspect]
     Active Substance: LOMITAPIDE MESYLATE
     Indication: PRODUCT USED FOR UNKNOWN INDICATION
     Route: 048
     Dates: start: 201404, end: 2014

REACTIONS (9)
  - Cardiac ablation [None]
  - Therapy cessation [None]
  - Diarrhoea [None]
  - Back pain [None]
  - Weight decreased [None]
  - Drug dose omission [None]
  - Myalgia [None]
  - Product used for unknown indication [None]
  - Renal pain [None]

NARRATIVE: CASE EVENT DATE: 201404
